FAERS Safety Report 13027578 (Version 1)
Quarter: 2016Q4

REPORT INFORMATION
  Report Type: Spontaneous
  Country: US (occurrence: US)
  Receive Date: 20161214
  Receipt Date: 20161214
  Transmission Date: 20170207
  Serious: Yes (Other)
  Sender: FDA-Public Use
  Company Number: US-NOVOPROD-522345

PATIENT
  Age: 74 Year
  Sex: Male
  Weight: 83.9 kg

DRUGS (4)
  1. NOVOLOG MIX 70/30 [Suspect]
     Active Substance: INSULIN ASPART
     Dosage: 30 U, QD (10U QAM AND 20U AT NIGHT)
     Route: 058
     Dates: start: 20161207
  2. NOVOLOG MIX 70/30 [Suspect]
     Active Substance: INSULIN ASPART
     Dosage: 30 U, QD (10U QAM AND 20U AT NIGHT)
     Route: 058
     Dates: start: 201611, end: 20161205
  3. NOVOLOG MIX 70/30 [Suspect]
     Active Substance: INSULIN ASPART
     Dosage: 18 U, QD AT NIGHT
     Route: 058
     Dates: start: 20161206, end: 20161206
  4. NOVOLOG MIX 70/30 [Suspect]
     Active Substance: INSULIN ASPART
     Indication: TYPE 2 DIABETES MELLITUS
     Dosage: 15 U, QD (5U QAM AND 10U AT NIGHT)
     Route: 058
     Dates: start: 2015, end: 201611

REACTIONS (4)
  - Device malfunction [Recovered/Resolved]
  - Pneumonia [Recovered/Resolved]
  - Blood glucose decreased [Recovered/Resolved]
  - Blood glucose increased [Recovered/Resolved]

NARRATIVE: CASE EVENT DATE: 201610
